FAERS Safety Report 7310379-9 (Version None)
Quarter: 2011Q1

REPORT INFORMATION
  Report Type: 
  Country: None (occurrence: None)
  Receive Date: 20110224
  Receipt Date: 20110215
  Transmission Date: 20110831
  Serious: Yes (Hospitalization)
  Sender: FDA-Public Use
  Company Number: KR-SANOFI-AVENTIS-2011SA009794

PATIENT
  Age: 72 Year
  Sex: Female

DRUGS (4)
  1. ETHAMBUTOL HYDROCHLORIDE [Suspect]
     Route: 065
  2. PYRAZINAMIDE [Suspect]
     Route: 065
  3. ISONIAZID [Suspect]
     Route: 065
  4. RIFAMPIN [Suspect]
     Route: 065

REACTIONS (5)
  - PYREXIA [None]
  - EOSINOPHILIA [None]
  - RASH MACULO-PAPULAR [None]
  - DRUG RASH WITH EOSINOPHILIA AND SYSTEMIC SYMPTOMS [None]
  - ANGIOEDEMA [None]
